FAERS Safety Report 22146810 (Version 1)
Quarter: 2023Q1

REPORT INFORMATION
  Report Type: Spontaneous
  Country: AU (occurrence: AU)
  Receive Date: 20230328
  Receipt Date: 20230328
  Transmission Date: 20230418
  Serious: Yes (Hospitalization)
  Sender: FDA-Public Use
  Company Number: AU-AMERICAN REGENT INC-2023000708

PATIENT
  Age: 15 Year
  Sex: Female

DRUGS (1)
  1. FERINJECT [Suspect]
     Active Substance: FERRIC CARBOXYMALTOSE
     Indication: Product used for unknown indication
     Dosage: 1 GRAM
     Dates: start: 20210514, end: 20210514

REACTIONS (10)
  - Adverse event [Unknown]
  - Lymphadenopathy [Unknown]
  - Skin mass [Unknown]
  - Reflux gastritis [Unknown]
  - Peripheral coldness [Unknown]
  - Anxiety [Unknown]
  - Malaise [Unknown]
  - Infusion site discolouration [Unknown]
  - Constipation [Unknown]
  - Abdominal pain upper [Unknown]

NARRATIVE: CASE EVENT DATE: 20210501
